FAERS Safety Report 24597102 (Version 3)
Quarter: 2024Q4

REPORT INFORMATION
  Report Type: Spontaneous
  Country: US (occurrence: US)
  Receive Date: 20241110
  Receipt Date: 20241227
  Transmission Date: 20250114
  Serious: Yes (Other)
  Sender: SANOFI AVENTIS
  Company Number: US-SA-2024SA308859

PATIENT
  Sex: Female
  Weight: 54.55 kg

DRUGS (3)
  1. CERDELGA [Suspect]
     Active Substance: ELIGLUSTAT
     Indication: Gaucher^s disease
     Dosage: 84 MG, BID
     Route: 048
     Dates: start: 20210720
  2. LISINOPRIL [Concomitant]
     Active Substance: LISINOPRIL
  3. FLUCELVAX QUADRIVALENT NOS [Concomitant]
     Active Substance: INFLUENZA A VIRUS A/BRISBANE/10/2010 (H1N1) ANTIGEN (MDCK CELL DERIVED, PROPIOLACTONE INACTIVATED)\I

REACTIONS (7)
  - Cataract [Unknown]
  - Seasonal allergy [Unknown]
  - Condition aggravated [Unknown]
  - Sneezing [Unknown]
  - Cough [Unknown]
  - Lacrimation increased [Unknown]
  - Intentional dose omission [Unknown]
